FAERS Safety Report 17092898 (Version 2)
Quarter: 2019Q4

REPORT INFORMATION
  Report Type: Spontaneous
  Country: US (occurrence: US)
  Receive Date: 20191129
  Receipt Date: 20191210
  Transmission Date: 20200122
  Serious: Yes (Life-Threatening, Other)
  Sender: FDA-Public Use
  Company Number: US-PFIZER INC-2019511726

PATIENT
  Age: 52 Year
  Sex: Female

DRUGS (6)
  1. LIDOCAINE HCL [Suspect]
     Active Substance: LIDOCAINE HYDROCHLORIDE
     Indication: HEADACHE
     Dosage: UNK (ON DAY 1, INFUSION AT THE RATE OF 1 MG/MIN)
     Route: 042
  2. TRAZODONE [Interacting]
     Active Substance: TRAZODONE HYDROCHLORIDE
     Indication: MAJOR DEPRESSION
     Dosage: 200 MG, 1X/DAY
  3. METFORMIN [Concomitant]
     Active Substance: METFORMIN HYDROCHLORIDE
     Dosage: 1000 MG, 1X/DAY
  4. SERTRALINE HCL [Interacting]
     Active Substance: SERTRALINE HYDROCHLORIDE
     Indication: MAJOR DEPRESSION
     Dosage: 200 MG, 1X/DAY
  5. GABAPENTIN. [Concomitant]
     Active Substance: GABAPENTIN
     Dosage: 600 MG, UNK
  6. LIDOCAINE HCL [Interacting]
     Active Substance: LIDOCAINE HYDROCHLORIDE
     Dosage: UNK (ON DAY 2, INFUSION AT THE RATE OF 2 MG/MIN)
     Route: 042

REACTIONS (9)
  - Drug interaction [Unknown]
  - Nausea [Unknown]
  - Toxicity to various agents [Recovering/Resolving]
  - Syncope [Unknown]
  - Balance disorder [Unknown]
  - Dizziness [Not Recovered/Not Resolved]
  - Nystagmus [Unknown]
  - Cardiac arrest [Recovering/Resolving]
  - Bradycardia [Unknown]
